FAERS Safety Report 7371055-X (Version None)
Quarter: 2011Q1

REPORT INFORMATION
  Report Type: 
  Country: None (occurrence: None)
  Receive Date: 20110318
  Receipt Date: 20110318
  Transmission Date: 20110831
  Serious: No
  Sender: FDA-Public Use
  Company Number: None

PATIENT
  Age: 42 Year
  Sex: Female
  Weight: 113.3993 kg

DRUGS (1)
  1. ENBREL [Suspect]
     Indication: RHEUMATOID ARTHRITIS
     Dosage: EVERYWEEK ID
     Route: 023
     Dates: start: 20100815, end: 20110317

REACTIONS (2)
  - INJECTION SITE MASS [None]
  - DYSGEUSIA [None]
